FAERS Safety Report 16743111 (Version 6)
Quarter: 2020Q1

REPORT INFORMATION
  Report Type: Spontaneous
  Country: ES (occurrence: ES)
  Receive Date: 20190827
  Receipt Date: 20200312
  Transmission Date: 20200409
  Serious: Yes (Life-Threatening, Hospitalization, Other)
  Sender: FDA-Public Use
  Company Number: ES-SUN PHARMACEUTICAL INDUSTRIES LTD-2019RR-218724

PATIENT
  Age: 78 Year
  Sex: Female
  Weight: 63 kg

DRUGS (12)
  1. KISQALI [Suspect]
     Active Substance: RIBOCICLIB
     Indication: BREAST CANCER
     Dosage: 600 MILLIGRAM, QD(CYCLICALLY 21 DAYSON/ 7 DAYS OFF
     Route: 065
     Dates: start: 20181120, end: 20190306
  2. LETROZOLE. [Suspect]
     Active Substance: LETROZOLE
     Dosage: 1 WEEKS OF THERAPY 1 WEEK REST
     Route: 065
     Dates: start: 20190329
  3. LETROZOLE. [Suspect]
     Active Substance: LETROZOLE
     Indication: BREAST CANCER
     Dosage: 3 WEEKS OF THERAPY 1 WEEK REST
     Route: 065
     Dates: start: 201811, end: 20190307
  4. CYCLOSPORINE. [Suspect]
     Active Substance: CYCLOSPORINE
     Indication: STEVENS-JOHNSON SYNDROME
     Dosage: 4 MILLIGRAM/KILOGRAM
     Route: 065
  5. ETANERCEPT [Suspect]
     Active Substance: ETANERCEPT
     Indication: STEVENS-JOHNSON SYNDROME
     Dosage: SINGLE DOSE
     Route: 058
  6. CYCLOSPORINE. [Suspect]
     Active Substance: CYCLOSPORINE
     Dosage: HALF DOSAGE
     Route: 065
     Dates: start: 20190311
  7. KISQALI [Suspect]
     Active Substance: RIBOCICLIB
     Indication: BREAST CANCER
     Dosage: 3 WEEKS OF THERAPY, 1 WEEK REST
     Route: 065
     Dates: start: 201811
  8. L-THYROXINE [Concomitant]
     Active Substance: LEVOTHYROXINE
     Indication: PRODUCT USED FOR UNKNOWN INDICATION
     Route: 065
  9. CYCLOSPORINE. [Suspect]
     Active Substance: CYCLOSPORINE
     Dosage: 3 UNK
     Route: 065
     Dates: start: 20190318, end: 20190319
  10. KISQALI [Suspect]
     Active Substance: RIBOCICLIB
     Indication: INVASIVE LOBULAR BREAST CARCINOMA
  11. ETANERCEPT [Suspect]
     Active Substance: ETANERCEPT
     Dosage: 50 MILLIGRAM, UNK
     Route: 058
  12. KISQALI [Suspect]
     Active Substance: RIBOCICLIB
     Indication: INVASIVE LOBULAR BREAST CARCINOMA

REACTIONS (37)
  - Oesophageal candidiasis [Unknown]
  - Blood lactate dehydrogenase increased [Unknown]
  - Electrocardiogram abnormal [Unknown]
  - Pancytopenia [Unknown]
  - Hypertension [Unknown]
  - Back pain [Unknown]
  - Primary hypothyroidism [Unknown]
  - Dysphagia [Unknown]
  - Temperature regulation disorder [Unknown]
  - Rash [Unknown]
  - Erythema multiforme [Unknown]
  - Fluid overload [Unknown]
  - Oedema [Unknown]
  - Osteoarthritis [Unknown]
  - Lymphadenopathy [Unknown]
  - Prerenal failure [Recovering/Resolving]
  - Skin haemorrhage [Unknown]
  - Lymphopenia [Unknown]
  - Toxic epidermal necrolysis [Recovering/Resolving]
  - Leukopenia [Unknown]
  - Staphylococcal bacteraemia [Unknown]
  - Spondylolisthesis [Unknown]
  - Malnutrition [Unknown]
  - Oral candidiasis [Unknown]
  - Vulvovaginal candidiasis [Unknown]
  - Dermatitis bullous [Unknown]
  - Superinfection [Unknown]
  - Pyrexia [Recovered/Resolved]
  - Neutropenia [Unknown]
  - Pain [Unknown]
  - Anaemia [Recovering/Resolving]
  - Scar [Unknown]
  - Stevens-Johnson syndrome [Recovering/Resolving]
  - Hypokalaemia [Unknown]
  - Hypoalbuminaemia [Unknown]
  - Vitamin D deficiency [Unknown]
  - Psychomotor disadaptation syndrome [Unknown]

NARRATIVE: CASE EVENT DATE: 20190208
